FAERS Safety Report 12670911 (Version 1)
Quarter: 2016Q3

REPORT INFORMATION
  Report Type: Spontaneous
  Country: US (occurrence: US)
  Receive Date: 20160822
  Receipt Date: 20160822
  Transmission Date: 20161109
  Serious: No
  Sender: FDA-Public Use
  Company Number: US-JAZZ-2016-US-005982

PATIENT
  Age: 41 Year
  Sex: Female

DRUGS (13)
  1. XYREM [Suspect]
     Active Substance: SODIUM OXYBATE
     Indication: NARCOLEPSY
     Dosage: 2.25 G, BID
     Route: 048
     Dates: start: 20160324
  2. PANCREAZE [Concomitant]
     Active Substance: PANCRELIPASE AMYLASE\PANCRELIPASE LIPASE\PANCRELIPASE PROTEASE
     Indication: GASTROINTESTINAL DISORDER
  3. RESTASIS [Concomitant]
     Active Substance: CYCLOSPORINE
     Indication: DRY EYE
  4. XYREM [Suspect]
     Active Substance: SODIUM OXYBATE
     Dosage: UNK UNK,
     Route: 048
     Dates: start: 20160406
  5. LYRICA [Concomitant]
     Active Substance: PREGABALIN
     Indication: FIBROMYALGIA
  6. ORTHO TRI CYCLEN [Concomitant]
     Active Substance: ETHINYL ESTRADIOL\NORGESTIMATE
     Indication: CONTRACEPTION
  7. CLARITIN [Concomitant]
     Active Substance: LORATADINE
     Indication: HYPERSENSITIVITY
  8. TRAMADOL HCL [Concomitant]
     Active Substance: TRAMADOL HYDROCHLORIDE
  9. RITALIN [Concomitant]
     Active Substance: METHYLPHENIDATE HYDROCHLORIDE
  10. ALPRAZOLAM. [Concomitant]
     Active Substance: ALPRAZOLAM
  11. BIOTIN [Concomitant]
     Active Substance: BIOTIN
  12. VYVANSE [Concomitant]
     Active Substance: LISDEXAMFETAMINE DIMESYLATE
     Indication: NARCOLEPSY
  13. IBUPROFEN. [Concomitant]
     Active Substance: IBUPROFEN

REACTIONS (10)
  - Pain [Not Recovered/Not Resolved]
  - Unevaluable event [Not Recovered/Not Resolved]
  - Rash [Recovered/Resolved]
  - Glossitis [Unknown]
  - Paraesthesia [Recovered/Resolved]
  - Muscular weakness [Unknown]
  - Oral pain [Not Recovered/Not Resolved]
  - Pyrexia [Not Recovered/Not Resolved]
  - Dysgeusia [Not Recovered/Not Resolved]
  - Lip swelling [Not Recovered/Not Resolved]

NARRATIVE: CASE EVENT DATE: 2016
